FAERS Safety Report 24423530 (Version 2)
Quarter: 2024Q4

REPORT INFORMATION
  Report Type: Spontaneous
  Country: US (occurrence: US)
  Receive Date: 20241010
  Receipt Date: 20241024
  Transmission Date: 20250114
  Serious: Yes (Other)
  Sender: TEVA
  Company Number: US-TEVA-VS-3251758

PATIENT
  Age: 67 Year
  Sex: Female

DRUGS (6)
  1. CLOBETASOL [Suspect]
     Active Substance: CLOBETASOL
     Indication: Subcorneal pustular dermatosis
     Route: 061
  2. HALOBETASOL [Suspect]
     Active Substance: HALOBETASOL
     Indication: Subcorneal pustular dermatosis
     Route: 061
  3. DAPSONE [Suspect]
     Active Substance: DAPSONE
     Indication: Subcorneal pustular dermatosis
     Dosage: LATER DOSE INCREASED
     Route: 065
  4. DAPSONE [Suspect]
     Active Substance: DAPSONE
     Indication: Subcorneal pustular dermatosis
     Route: 065
  5. TRIAMCINOLONE ACETONIDE [Suspect]
     Active Substance: TRIAMCINOLONE ACETONIDE
     Indication: Subcorneal pustular dermatosis
     Dosage: TRIAMCINOLONE ACETONIDE-10
     Route: 026
  6. BETAMETHASONE [Suspect]
     Active Substance: BETAMETHASONE
     Indication: Subcorneal pustular dermatosis
     Dosage: DIPROPRIONATE
     Route: 061

REACTIONS (3)
  - Drug reaction with eosinophilia and systemic symptoms [Recovered/Resolved]
  - Drug ineffective [Unknown]
  - Treatment noncompliance [Unknown]
